FAERS Safety Report 11020349 (Version 2)
Quarter: 2015Q2

REPORT INFORMATION
  Report Type: Report from Study
  Country: US (occurrence: US)
  Receive Date: 20150413
  Receipt Date: 20150415
  Transmission Date: 20150821
  Serious: Yes (Other)
  Sender: FDA-Public Use
  Company Number: US-PFIZER INC-2015119846

PATIENT
  Age: 71 Year
  Sex: Female

DRUGS (1)
  1. SUTENT [Suspect]
     Active Substance: SUNITINIB MALATE
     Indication: METASTATIC RENAL CELL CARCINOMA
     Dosage: UNK

REACTIONS (6)
  - Disease progression [Unknown]
  - Weight decreased [Recovering/Resolving]
  - Cytopenia [Recovering/Resolving]
  - Atrial fibrillation [Recovering/Resolving]
  - Stomatitis [Recovering/Resolving]
  - Metastatic renal cell carcinoma [Unknown]
